FAERS Safety Report 15020695 (Version 1)
Quarter: 2018Q2

REPORT INFORMATION
  Report Type: Spontaneous
  Country: US (occurrence: US)
  Receive Date: 20180618
  Receipt Date: 20180618
  Transmission Date: 20180711
  Serious: No
  Sender: FDA-Public Use
  Company Number: US-009507513-1806USA004897

PATIENT
  Age: 52 Year
  Sex: Female

DRUGS (6)
  1. TEMODAR [Suspect]
     Active Substance: TEMOZOLOMIDE
     Indication: PROLACTIN-PRODUCING PITUITARY TUMOUR
     Dosage: UNK
     Route: 048
  2. CABERGOLINE. [Concomitant]
     Active Substance: CABERGOLINE
     Indication: HYPERPROLACTINAEMIA
     Dosage: UNK
     Dates: start: 1990, end: 2016
  3. DEXAMETHASONE. [Suspect]
     Active Substance: DEXAMETHASONE
     Indication: MALIGNANT PITUITARY TUMOUR
  4. TAMOXIFEN [Concomitant]
     Active Substance: TAMOXIFEN
     Indication: INVASIVE DUCTAL BREAST CARCINOMA
     Dosage: UNK
  5. DEXAMETHASONE. [Suspect]
     Active Substance: DEXAMETHASONE
     Indication: PROLACTIN-PRODUCING PITUITARY TUMOUR
     Dosage: UNK
     Route: 048
  6. TEMODAR [Suspect]
     Active Substance: TEMOZOLOMIDE
     Indication: MALIGNANT PITUITARY TUMOUR

REACTIONS (2)
  - Off label use [Unknown]
  - Drug ineffective [Unknown]
